FAERS Safety Report 16770517 (Version 2)
Quarter: 2019Q3

REPORT INFORMATION
  Report Type: Spontaneous
  Country: US (occurrence: US)
  Receive Date: 20190904
  Receipt Date: 20190926
  Transmission Date: 20191005
  Serious: Yes (Hospitalization, Other)
  Sender: FDA-Public Use
  Company Number: US-UNITED THERAPEUTICS-UNT-2019-014625

PATIENT
  Age: 58 Year
  Sex: Female
  Weight: 54.42 kg

DRUGS (3)
  1. REMODULIN [Suspect]
     Active Substance: TREPROSTINIL
     Indication: PULMONARY ARTERIAL HYPERTENSION
     Dosage: 0.026 ?G/KG, CONTINUING
     Route: 058
     Dates: start: 20190107
  2. SILDENAFIL CITRATE. [Concomitant]
     Active Substance: SILDENAFIL CITRATE
     Indication: PRODUCT USED FOR UNKNOWN INDICATION
     Dosage: UNK
     Route: 065
  3. IMODIUM [Suspect]
     Active Substance: LOPERAMIDE HYDROCHLORIDE
     Indication: PRODUCT USED FOR UNKNOWN INDICATION
     Dosage: UNK
     Route: 065

REACTIONS (11)
  - Nausea [Unknown]
  - Constipation [Unknown]
  - Escherichia infection [Unknown]
  - Abdominal pain upper [Unknown]
  - Infusion site pain [Unknown]
  - Infusion site erythema [Unknown]
  - Dehydration [Unknown]
  - Vomiting [Unknown]
  - Acute kidney injury [Unknown]
  - Weight decreased [Unknown]
  - Diarrhoea infectious [Unknown]

NARRATIVE: CASE EVENT DATE: 2019
